FAERS Safety Report 20648488 (Version 1)
Quarter: 2022Q1

REPORT INFORMATION
  Report Type: Spontaneous
  Country: US (occurrence: None)
  Receive Date: 20220328
  Receipt Date: 20220328
  Transmission Date: 20220423
  Serious: Yes (Life-Threatening, Hospitalization, Disabling, Other)
  Sender: FDA-Public Use
  Company Number: None

PATIENT
  Sex: Male
  Weight: 65.25 kg

DRUGS (10)
  1. ZOLOFT [Suspect]
     Active Substance: SERTRALINE HYDROCHLORIDE
     Indication: Anxiety
     Dosage: FREQUENCY : TWICE A DAY;?
  2. ZOLOFT [Suspect]
     Active Substance: SERTRALINE HYDROCHLORIDE
     Indication: Insomnia
  3. CANNABIS SATIVA SUBSP. INDICA TOP [Concomitant]
     Active Substance: CANNABIS SATIVA SUBSP. INDICA TOP
  4. IBUPROFEN [Concomitant]
     Active Substance: IBUPROFEN
  5. NAPROXEN [Concomitant]
     Active Substance: NAPROXEN
  6. VITAMINS [Concomitant]
     Active Substance: VITAMINS
  7. NO boosters [Concomitant]
  8. CREATINE [Concomitant]
     Active Substance: CREATINE
  9. BCAA [Concomitant]
  10. EAAS [Concomitant]

REACTIONS (11)
  - Product contamination chemical [None]
  - Amnesia [None]
  - Libido disorder [None]
  - Memory impairment [None]
  - Jealous delusion [None]
  - Paranoia [None]
  - Cerebral disorder [None]
  - Abnormal behaviour [None]
  - Educational problem [None]
  - Job dissatisfaction [None]
  - Irritability [None]
